FAERS Safety Report 22397663 (Version 1)
Quarter: 2023Q2

REPORT INFORMATION
  Report Type: Spontaneous
  Country: DE (occurrence: DE)
  Receive Date: 20230602
  Receipt Date: 20230602
  Transmission Date: 20230721
  Serious: Yes (Other)
  Sender: FDA-Public Use
  Company Number: DE-CELLTRION INC.-2023DE011280

PATIENT

DRUGS (7)
  1. RITUXIMAB [Suspect]
     Active Substance: RITUXIMAB
     Indication: Mucous membrane pemphigoid
     Dosage: 1 GRAM
     Route: 065
  2. DEXAMETHASONE [Concomitant]
     Active Substance: DEXAMETHASONE
     Indication: Mucous membrane pemphigoid
     Dosage: 3 X 100 MG EACH (AT INITIATION OF RTX)
  3. DEXAMETHASONE [Concomitant]
     Active Substance: DEXAMETHASONE
     Dosage: 3 X 50 MG EACH (UP TO 6 MONTHS AFTER RTX)
  4. PREDNISONE [Concomitant]
     Active Substance: PREDNISONE
     Indication: Mucous membrane pemphigoid
     Dosage: 5 MILLIGRAM, QD (UP TO 6 MONTHS AFTER RTX)
  5. DAPSONE [Concomitant]
     Active Substance: DAPSONE
     Dosage: 100 MILLIGRAM QD (AT INITIATION OF RTX)
  6. DAPSONE [Concomitant]
     Active Substance: DAPSONE
     Dosage: 100 MILLIGRAM QD (UP TO 6 MONTHS AFTER RTX)
  7. DAPSONE [Concomitant]
     Active Substance: DAPSONE
     Dosage: 75 MILLIGRAM, QD (MONTHS 7 -12 AFTER RTX)

REACTIONS (8)
  - Mucous membrane pemphigoid [Unknown]
  - Macular hole [Unknown]
  - Vitreous opacities [Unknown]
  - Bundle branch block left [Unknown]
  - Ejection fraction decreased [Unknown]
  - Asthma [Unknown]
  - Dyspnoea [Unknown]
  - Off label use [Unknown]
